FAERS Safety Report 8020933-7 (Version None)
Quarter: 2011Q4

REPORT INFORMATION
  Report Type: 
  Country: None (occurrence: None)
  Receive Date: 20111229
  Receipt Date: 20111229
  Transmission Date: 20120403
  Serious: Yes (Other)
  Sender: FDA-Public Use
  Company Number: None

PATIENT
  Age: 76 Year
  Sex: Female
  Weight: 61.2356 kg

DRUGS (2)
  1. AMLODIPINE BESYLATE [Suspect]
     Indication: BLOOD PRESSURE
     Dosage: 1/2 TAB 2 A DAY
     Dates: start: 20111201
  2. METOPROLOL TARTRATE [Suspect]
     Dosage: 1/2 TAB 2 A DAY

REACTIONS (2)
  - FEELING JITTERY [None]
  - NIGHTMARE [None]
